FAERS Safety Report 4480293-5 (Version None)
Quarter: 2004Q4

REPORT INFORMATION
  Report Type: 
  Country: None (occurrence: None)
  Receive Date: 20041020
  Receipt Date: 20041012
  Transmission Date: 20050328
  Serious: Yes (Hospitalization, Disabling)
  Sender: FDA-Public Use
  Company Number: US-MERCK-0410USA01816

PATIENT
  Age: 68 Year
  Sex: Male

DRUGS (10)
  1. VIOXX [Suspect]
     Indication: ARTHRITIS
     Route: 048
     Dates: start: 19990101, end: 20030101
  2. BEXTRA [Concomitant]
     Route: 065
     Dates: start: 19990101
  3. TOPROL-XL [Concomitant]
     Route: 065
  4. FLOMAX [Concomitant]
     Route: 065
  5. PREVACID [Concomitant]
     Route: 065
  6. CLONAZEPAM [Concomitant]
     Route: 065
  7. ACIPHEX [Concomitant]
     Route: 065
  8. FISH OIL (UNSPECIFIED) [Concomitant]
     Route: 065
  9. ASPIRIN [Concomitant]
     Route: 065
  10. TYLENOL [Concomitant]
     Route: 065

REACTIONS (4)
  - CHEST PAIN [None]
  - EXTRASYSTOLES [None]
  - HEART RATE IRREGULAR [None]
  - HYPERTENSION [None]
